FAERS Safety Report 8432915-1 (Version None)
Quarter: 2012Q2

REPORT INFORMATION
  Report Type: 
  Country: None (occurrence: None)
  Receive Date: 20120323
  Receipt Date: 20110713
  Transmission Date: 20120825
  Serious: Yes (Hospitalization)
  Sender: FDA-Public Use
  Company Number: 163-21880-11071734

PATIENT
  Age: 69 Year
  Sex: Female
  Weight: 45.8133 kg

DRUGS (19)
  1. ZOLOFT [Concomitant]
  2. ZOMETA [Concomitant]
  3. SLOW RELEASE IRON (IRON) [Concomitant]
  4. IMMUNE GLOBULIN NOS [Suspect]
     Indication: PRODUCT USED FOR UNKNOWN INDICATION
     Dosage: IV
     Route: 042
  5. PRINZIDE [Concomitant]
  6. LORTAB [Concomitant]
  7. DXM (DEXTROMETHORPHAN) [Concomitant]
  8. DEXAMETHASONE [Concomitant]
  9. PAIN MED (ANALGESICS) [Concomitant]
  10. SINEMET [Concomitant]
  11. BENADRYL [Concomitant]
  12. REVLIMID [Suspect]
     Indication: MULTIPLE MYELOMA
     Dosage: 25 MG, 1 IN 1 D, PO ; 15 MG, 21/7, PO
     Route: 048
     Dates: start: 20100921
  13. REVLIMID [Suspect]
     Indication: MULTIPLE MYELOMA
     Dosage: 25 MG, 1 IN 1 D, PO ; 15 MG, 21/7, PO
     Route: 048
     Dates: start: 20110501
  14. ZITHROMAX [Concomitant]
  15. UNASYN [Concomitant]
  16. COUMADIN [Concomitant]
  17. IBUPROFEN (ADVIL) [Concomitant]
  18. ASPIRIN [Concomitant]
  19. CLINDAMYCIN [Concomitant]

REACTIONS (1)
  - HYPERSENSITIVITY [None]
